FAERS Safety Report 9883565 (Version 14)
Quarter: 2016Q4

REPORT INFORMATION
  Report Type: Spontaneous
  Country: CA (occurrence: CA)
  Receive Date: 20140210
  Receipt Date: 20161107
  Transmission Date: 20170207
  Serious: Yes (Hospitalization, Other)
  Sender: FDA-Public Use
  Company Number: CA-ROCHE-1344929

PATIENT
  Age: 55 Year
  Sex: Male

DRUGS (11)
  1. XOLAIR [Suspect]
     Active Substance: OMALIZUMAB
     Dosage: UNK
     Route: 058
     Dates: start: 20141112
  2. XOLAIR [Suspect]
     Active Substance: OMALIZUMAB
     Dosage: UNK
     Route: 058
     Dates: start: 20160816
  3. XOLAIR [Suspect]
     Active Substance: OMALIZUMAB
     Dosage: UNK
     Route: 058
     Dates: start: 20161011
  4. XOLAIR [Suspect]
     Active Substance: OMALIZUMAB
     Dosage: UNK
     Route: 058
     Dates: start: 20141015
  5. XOLAIR [Suspect]
     Active Substance: OMALIZUMAB
     Dosage: UNK
     Route: 058
     Dates: start: 20150107
  6. FINASTERIDE. [Concomitant]
     Active Substance: FINASTERIDE
     Indication: NEPHROLITHIASIS
     Dosage: 5 MG PER DAY AT BEDTIME
     Route: 065
     Dates: start: 20130712
  7. XOLAIR [Suspect]
     Active Substance: OMALIZUMAB
     Indication: ASTHMA
     Route: 058
     Dates: start: 20130115
  8. FLOVENT [Concomitant]
     Active Substance: FLUTICASONE PROPIONATE
     Indication: PRODUCT USED FOR UNKNOWN INDICATION
     Dosage: THREE TO FOUR TIMES
     Route: 065
  9. XOLAIR [Suspect]
     Active Substance: OMALIZUMAB
     Dosage: UNK
     Route: 058
     Dates: start: 20150527
  10. TAMSULOSIN SANDOZ [Suspect]
     Active Substance: TAMSULOSIN
     Indication: NEPHROLITHIASIS
     Dosage: AT BEDTIME
     Route: 065
     Dates: start: 20130712
  11. XOLAIR [Suspect]
     Active Substance: OMALIZUMAB
     Dosage: UNK
     Route: 058
     Dates: start: 20141210

REACTIONS (19)
  - Intervertebral disc protrusion [Unknown]
  - Fungal skin infection [Unknown]
  - Heart rate increased [Unknown]
  - Inguinal hernia [Unknown]
  - Fall [Unknown]
  - Humidity intolerance [Unknown]
  - Hypertension [Not Recovered/Not Resolved]
  - Drug ineffective [Unknown]
  - Asthma [Unknown]
  - Dyspnoea [Recovering/Resolving]
  - Weight decreased [Unknown]
  - Seasonal allergy [Unknown]
  - Prostatic disorder [Unknown]
  - Injection site erythema [Unknown]
  - Catheter site haemorrhage [Unknown]
  - Constipation [Unknown]
  - Cough [Unknown]
  - Wound infection [Recovered/Resolved]
  - Renal pain [Unknown]

NARRATIVE: CASE EVENT DATE: 20130115
